FAERS Safety Report 6045392-5 (Version None)
Quarter: 2009Q1

REPORT INFORMATION
  Report Type: 
  Country: None (occurrence: None)
  Receive Date: 20090121
  Receipt Date: 20090115
  Transmission Date: 20090719
  Serious: No
  Sender: FDA-Public Use
  Company Number: US-JNJFOC-20090104510

PATIENT
  Sex: Female
  Weight: 65.77 kg

DRUGS (6)
  1. DURAGESIC-100 [Suspect]
     Indication: PAIN
     Route: 062
  2. DILAUDID [Concomitant]
     Indication: PAIN
     Route: 048
  3. LORTAB [Concomitant]
     Indication: PAIN
     Route: 048
  4. NEURONTIN [Concomitant]
     Indication: PAIN
     Route: 048
  5. VALIUM [Concomitant]
     Indication: PAIN
     Route: 048
  6. ZANAFLEX [Concomitant]
     Indication: PAIN
     Dosage: 4 MG 3 TIMES DAILY
     Route: 048

REACTIONS (2)
  - DRUG INEFFECTIVE [None]
  - INAPPROPRIATE SCHEDULE OF DRUG ADMINISTRATION [None]
